FAERS Safety Report 10525541 (Version 2)
Quarter: 2014Q4

REPORT INFORMATION
  Report Type: Spontaneous
  Country: US (occurrence: US)
  Receive Date: 20141017
  Receipt Date: 20141024
  Transmission Date: 20150528
  Serious: Yes (Other)
  Sender: FDA-Public Use
  Company Number: US-PFIZER INC-2014282979

PATIENT
  Age: 68 Year
  Sex: Female
  Weight: 87.08 kg

DRUGS (5)
  1. LYRICA [Suspect]
     Active Substance: PREGABALIN
     Indication: TRIGEMINAL NEURALGIA
     Dosage: 300 MG, UNK
     Dates: start: 200605
  2. XANAX [Concomitant]
     Active Substance: ALPRAZOLAM
     Indication: SEDATIVE THERAPY
     Dosage: 1 MG, AS NEEDED
  3. LYRICA [Suspect]
     Active Substance: PREGABALIN
     Indication: BACK INJURY
     Dosage: 150 MG, UNK
  4. SYMBICORT [Concomitant]
     Active Substance: BUDESONIDE\FORMOTEROL FUMARATE DIHYDRATE
     Dosage: UNK
  5. LYRICA [Suspect]
     Active Substance: PREGABALIN
     Dosage: 175 MG, UNK

REACTIONS (38)
  - Paraesthesia [Unknown]
  - Drug ineffective [Unknown]
  - Osteoporosis [Unknown]
  - Drug intolerance [Unknown]
  - Hypersensitivity [Unknown]
  - Dry mouth [Unknown]
  - Swollen tongue [Unknown]
  - Paralysis [Unknown]
  - Urinary incontinence [Unknown]
  - Arthralgia [Unknown]
  - Blood pressure decreased [Unknown]
  - Peripheral swelling [Unknown]
  - Visual impairment [Unknown]
  - Burning mouth syndrome [Unknown]
  - Heart rate increased [Unknown]
  - Swelling face [Unknown]
  - Hypotonia [Unknown]
  - Skin burning sensation [Unknown]
  - Fall [Unknown]
  - Gait disturbance [Unknown]
  - Blood cholesterol increased [Unknown]
  - Feeling abnormal [Unknown]
  - Drug dependence [Unknown]
  - Renal disorder [Unknown]
  - Amnesia [Unknown]
  - Arthropathy [Unknown]
  - Eczema [Unknown]
  - Lip swelling [Unknown]
  - Nerve injury [Unknown]
  - Heart rate irregular [Unknown]
  - Disturbance in attention [Unknown]
  - Syncope [Unknown]
  - Disease progression [Unknown]
  - Emphysema [Unknown]
  - Dry skin [Unknown]
  - Weight increased [Unknown]
  - Balance disorder [Unknown]
  - Pharyngeal oedema [Unknown]

NARRATIVE: CASE EVENT DATE: 2006
